FAERS Safety Report 14763414 (Version 1)
Quarter: 2018Q2

REPORT INFORMATION
  Report Type: Spontaneous
  Country: US (occurrence: US)
  Receive Date: 20180409
  Receipt Date: 20180409
  Transmission Date: 20180711
  Serious: Yes (Hospitalization)
  Sender: FDA-Public Use
  Company Number: None

PATIENT
  Age: 62 Year
  Sex: Female

DRUGS (1)
  1. NORTHERA [Suspect]
     Active Substance: DROXIDOPA
     Indication: NERVOUS SYSTEM DISORDER
     Route: 048
     Dates: start: 20170329

REACTIONS (2)
  - Blood pressure increased [None]
  - Body temperature increased [None]
